FAERS Safety Report 21389891 (Version 1)
Quarter: 2022Q3

REPORT INFORMATION
  Report Type: Report from Study
  Country: CA (occurrence: CA)
  Receive Date: 20220929
  Receipt Date: 20220929
  Transmission Date: 20221027
  Serious: Yes (Other)
  Sender: FDA-Public Use
  Company Number: CA-SUN PHARMACEUTICAL INDUSTRIES LTD-2022R1-356454

PATIENT
  Sex: Female
  Weight: 64 kg

DRUGS (2)
  1. ASPIRIN [Suspect]
     Active Substance: ASPIRIN
     Indication: Antiphospholipid syndrome
     Dosage: UNK
     Route: 065
  2. DALTEPARIN [Suspect]
     Active Substance: DALTEPARIN
     Indication: Antiphospholipid syndrome
     Dosage: 200 UNITS/KG
     Route: 065

REACTIONS (3)
  - Transient ischaemic attack [Unknown]
  - Exposure during pregnancy [Unknown]
  - Premature delivery [Unknown]
